FAERS Safety Report 4668880-2 (Version None)
Quarter: 2005Q2

REPORT INFORMATION
  Report Type: 
  Country: None (occurrence: None)
  Receive Date: 20050523
  Receipt Date: 20050225
  Transmission Date: 20051028
  Serious: Yes (Death)
  Sender: FDA-Public Use
  Company Number: US-MERCK-0503USA00096

PATIENT
  Age: 49 Year
  Sex: Male
  Weight: 91 kg

DRUGS (2)
  1. VIOXX [Suspect]
     Indication: RHEUMATOID ARTHRITIS
     Route: 048
     Dates: start: 19990501, end: 20020201
  2. VIOXX [Suspect]
     Indication: PAIN
     Route: 048
     Dates: start: 19990501, end: 20020201

REACTIONS (7)
  - CARDIO-RESPIRATORY ARREST [None]
  - EMOTIONAL DISTRESS [None]
  - GLAUCOMA [None]
  - MYOCARDIAL INFARCTION [None]
  - OVERDOSE [None]
  - PYODERMA GANGRENOSUM [None]
  - RHEUMATOID ARTHRITIS [None]
